FAERS Safety Report 13149824 (Version 1)
Quarter: 2017Q1

REPORT INFORMATION
  Report Type: Spontaneous
  Country: US (occurrence: US)
  Receive Date: 20170125
  Receipt Date: 20170125
  Transmission Date: 20170428
  Serious: No
  Sender: FDA-Public Use
  Company Number: GXBR2016US002543

PATIENT
  Age: 69 Year
  Sex: Male
  Weight: 74.38 kg

DRUGS (3)
  1. OMEPRAZOLE DELAYED RELEASE [Suspect]
     Active Substance: OMEPRAZOLE
     Indication: ANTACID THERAPY
     Dosage: 20 MG, QD
     Route: 048
     Dates: start: 2005, end: 20160807
  2. CREON [Concomitant]
     Active Substance: PANCRELIPASE AMYLASE\PANCRELIPASE LIPASE\PANCRELIPASE PROTEASE
     Indication: PANCREATIC ENZYMES DECREASED
     Dosage: UNK DF, UNK
     Route: 048
     Dates: start: 2005
  3. OMEPRAZOLE DELAYED RELEASE [Suspect]
     Active Substance: OMEPRAZOLE
     Dosage: 20 MG, QOD
     Route: 048
     Dates: start: 20160808

REACTIONS (1)
  - Abdominal rigidity [Not Recovered/Not Resolved]

NARRATIVE: CASE EVENT DATE: 2005
